FAERS Safety Report 26155667 (Version 1)
Quarter: 2025Q4

REPORT INFORMATION
  Report Type: Spontaneous
  Country: US (occurrence: US)
  Receive Date: 20251215
  Receipt Date: 20251215
  Transmission Date: 20260118
  Serious: No
  Sender: ALKEM
  Company Number: US-ALKEM LABORATORIES LIMITED-IR-ALKEM-2025-09279

PATIENT
  Age: 46 Year
  Sex: Female

DRUGS (4)
  1. TACROLIMUS [Suspect]
     Active Substance: TACROLIMUS
     Indication: Granuloma annulare
     Dosage: UNK
     Route: 061
  2. TOFACITINIB [Suspect]
     Active Substance: TOFACITINIB
     Indication: Granuloma annulare
     Dosage: UNK, BID (OINTMENT 30-G TUBE TWICE DAILY TO THE RIGHT ARM)
     Route: 061
  3. DAPSONE [Suspect]
     Active Substance: DAPSONE
     Indication: Granuloma annulare
     Dosage: 100 MILLIGRAM, QD
     Route: 065
  4. HYDROXYCHLOROQUINE [Suspect]
     Active Substance: HYDROXYCHLOROQUINE
     Indication: Granuloma annulare
     Dosage: 300 MILLIGRAM, QD
     Route: 065

REACTIONS (2)
  - Therapy non-responder [Unknown]
  - Off label use [Unknown]
